FAERS Safety Report 23920593 (Version 1)
Quarter: 2024Q2

REPORT INFORMATION
  Report Type: Spontaneous
  Country: US (occurrence: None)
  Receive Date: 20240530
  Receipt Date: 20240530
  Transmission Date: 20240715
  Serious: Yes (Hospitalization)
  Sender: FDA-Public Use
  Company Number: None

PATIENT
  Sex: Male

DRUGS (4)
  1. IRINOTECAN HYDROCHLORIDE [Suspect]
     Active Substance: IRINOTECAN HYDROCHLORIDE
     Indication: Colon cancer
     Dosage: OTHER FREQUENCY : EVERY 14 DAYS;?
     Route: 042
     Dates: start: 20240402
  2. FLUOROURACIL [Suspect]
     Active Substance: FLUOROURACIL
     Indication: Colon cancer
     Dosage: OTHER FREQUENCY : EVERY 14 DAYS;?
     Route: 042
     Dates: start: 20240409
  3. LEUCOVORIN CALC [Concomitant]
  4. DEXAMETHASONE [Concomitant]
     Indication: Colon cancer

REACTIONS (2)
  - Sepsis [None]
  - Pneumonia [None]
